FAERS Safety Report 8573986-1 (Version None)
Quarter: 2012Q3

REPORT INFORMATION
  Report Type: 
  Country: None (occurrence: None)
  Receive Date: 20120806
  Receipt Date: 20120731
  Transmission Date: 20120928
  Serious: Yes (Other)
  Sender: FDA-Public Use
  Company Number: PE-PFIZER INC-2012187078

PATIENT
  Age: 59 Year
  Sex: Female

DRUGS (1)
  1. XALATAN [Suspect]
     Dosage: UNK
     Route: 047
     Dates: start: 20120201

REACTIONS (1)
  - GLAUCOMA [None]
